FAERS Safety Report 5118691-9 (Version None)
Quarter: 2006Q4

REPORT INFORMATION
  Report Type: 
  Country: None (occurrence: None)
  Receive Date: 20061002
  Receipt Date: 20050121
  Transmission Date: 20070319
  Serious: Yes (Hospitalization, Disabling)
  Sender: FDA-Public Use
  Company Number: US-ROCHE-393478

PATIENT
  Age: 16 Year
  Sex: Female
  Weight: 58.1 kg

DRUGS (4)
  1. ACCUTANE [Suspect]
     Route: 048
     Dates: start: 19991006, end: 19991108
  2. ACCUTANE [Suspect]
     Route: 048
     Dates: start: 19991108, end: 20000228
  3. ACCUTANE [Suspect]
     Route: 048
     Dates: start: 20000228
  4. ORTHO TRI-CYCLEN [Concomitant]
     Route: 048

REACTIONS (57)
  - ACNE [None]
  - ANAL FISSURE [None]
  - ANHEDONIA [None]
  - ANOREXIA [None]
  - ANXIETY [None]
  - ARRHYTHMIA [None]
  - ARTHRALGIA [None]
  - BACK PAIN [None]
  - BACTEROIDES INFECTION [None]
  - BLOOD TRIGLYCERIDES INCREASED [None]
  - BULIMIA NERVOSA [None]
  - CHEST PAIN [None]
  - COLITIS [None]
  - CONTUSION [None]
  - COSTOCHONDRITIS [None]
  - CROHN'S DISEASE [None]
  - CRYING [None]
  - CYST [None]
  - DEPRESSION [None]
  - DISTURBANCE IN ATTENTION [None]
  - DYSKINESIA OESOPHAGEAL [None]
  - DYSPNOEA [None]
  - ELECTROCARDIOGRAM PR SHORTENED [None]
  - ENTEROCOCCAL INFECTION [None]
  - ESCHERICHIA INFECTION [None]
  - FEELING GUILTY [None]
  - GASTRITIS [None]
  - GASTROINTESTINAL DISORDER [None]
  - GASTROINTESTINAL FISTULA [None]
  - GASTROOESOPHAGEAL REFLUX DISEASE [None]
  - GENERALISED ANXIETY DISORDER [None]
  - HAEMORRHOIDS [None]
  - HEADACHE [None]
  - HIATUS HERNIA [None]
  - ILEITIS [None]
  - INFLAMMATORY BOWEL DISEASE [None]
  - INSOMNIA [None]
  - INTESTINAL HAEMORRHAGE [None]
  - INTESTINAL OBSTRUCTION [None]
  - IRRITABILITY [None]
  - KLEBSIELLA INFECTION [None]
  - MAJOR DEPRESSION [None]
  - MILK ALLERGY [None]
  - MITRAL VALVE PROLAPSE [None]
  - MULTI-ORGAN DISORDER [None]
  - OESOPHAGEAL DISORDER [None]
  - OESOPHAGEAL STENOSIS [None]
  - OESOPHAGITIS [None]
  - PALPITATIONS [None]
  - RECTAL HAEMORRHAGE [None]
  - SCAR [None]
  - STREPTOCOCCAL INFECTION [None]
  - SUICIDAL IDEATION [None]
  - SUICIDE ATTEMPT [None]
  - SYNCOPE [None]
  - THROAT TIGHTNESS [None]
  - VISUAL ACUITY REDUCED [None]
